FAERS Safety Report 23797839 (Version 1)
Quarter: 2024Q2

REPORT INFORMATION
  Report Type: Spontaneous
  Country: US (occurrence: None)
  Receive Date: 20240426
  Receipt Date: 20240426
  Transmission Date: 20240716
  Serious: No
  Sender: FDA-Public Use
  Company Number: None

PATIENT
  Age: 82 Year
  Sex: Female

DRUGS (1)
  1. PROMACTA [Suspect]
     Active Substance: ELTROMBOPAG OLAMINE
     Indication: Myelodysplastic syndrome
     Dosage: 50 MG DAILY ORAL?
     Route: 048
     Dates: start: 20240313

REACTIONS (2)
  - Platelet count decreased [None]
  - Therapy interrupted [None]

NARRATIVE: CASE EVENT DATE: 20240426
